FAERS Safety Report 9124356 (Version 1)
Quarter: 2013Q1

REPORT INFORMATION
  Report Type: Spontaneous
  Country: US (occurrence: US)
  Receive Date: 20130116
  Receipt Date: 20130116
  Transmission Date: 20140127
  Serious: Yes (Other)
  Sender: FDA-Public Use
  Company Number: US-009507513-1301USA004033

PATIENT
  Age: 31 Year
  Sex: Female

DRUGS (7)
  1. SINGULAIR [Suspect]
  2. DEXAMETHASONE [Suspect]
     Indication: ASTHMA
  3. FAMOTIDINE [Suspect]
     Indication: URTICARIA
  4. DOXEPIN HYDROCHLORIDE [Suspect]
     Indication: RHINITIS ALLERGIC
  5. DIPHENHYDRAMINE HYDROCHLORIDE [Suspect]
  6. CETIRIZINE HYDROCHLORIDE [Suspect]
  7. HYDROXYZINE [Concomitant]

REACTIONS (10)
  - Fatigue [Unknown]
  - Urticaria [Unknown]
  - Pyrexia [Unknown]
  - Hypothyroidism [Unknown]
  - Hypertension [Unknown]
  - Hepatic mass [Unknown]
  - Contusion [Unknown]
  - Breast adenoma [Unknown]
  - Arthralgia [Unknown]
  - Angioedema [Unknown]
